FAERS Safety Report 7772426-X (Version None)
Quarter: 2011Q3

REPORT INFORMATION
  Report Type: 
  Country: None (occurrence: None)
  Receive Date: 20110922
  Receipt Date: 20110914
  Transmission Date: 20111222
  Serious: Yes (Other)
  Sender: FDA-Public Use
  Company Number: PHHY2011FI82295

PATIENT
  Age: 68 Year
  Sex: Male

DRUGS (1)
  1. ENOXAPARIN SODIUM [Suspect]
     Dosage: 40 MG, UNK

REACTIONS (8)
  - DYSPNOEA [None]
  - HEPARIN-INDUCED THROMBOCYTOPENIA [None]
  - HEART RATE INCREASED [None]
  - PULMONARY EMBOLISM [None]
  - THROMBOSIS [None]
  - URTICARIA [None]
  - INFERIOR VENA CAVAL OCCLUSION [None]
  - OEDEMA PERIPHERAL [None]
